FAERS Safety Report 8167806-7 (Version None)
Quarter: 2012Q1

REPORT INFORMATION
  Report Type: 
  Country: None (occurrence: None)
  Receive Date: 20120227
  Receipt Date: 20120222
  Transmission Date: 20120608
  Serious: Yes (Death)
  Sender: FDA-Public Use
  Company Number: CH-CUBIST-2012S1000211

PATIENT
  Age: 54 Year
  Sex: Female
  Weight: 75 kg

DRUGS (12)
  1. BACTRIM [Concomitant]
     Indication: PRODUCT USED FOR UNKNOWN INDICATION
     Dosage: DOSE UNIT:U UNKNOWN
     Route: 065
     Dates: start: 20111028
  2. DALACINE /00166003/ [Concomitant]
     Indication: PRODUCT USED FOR UNKNOWN INDICATION
     Dosage: DOSE UNIT:U UNKNOWN
     Route: 065
  3. AMBISOME [Concomitant]
     Indication: PRODUCT USED FOR UNKNOWN INDICATION
     Dosage: DOSE UNIT:U UNKNOWN
     Route: 065
     Dates: start: 20111111
  4. NEXIUM [Concomitant]
     Indication: PRODUCT USED FOR UNKNOWN INDICATION
     Dosage: DOSE UNIT:U UNKNOWN
     Route: 065
  5. CUBICIN [Suspect]
     Indication: NEUTROPENIC COLITIS
     Route: 042
     Dates: start: 20111118
  6. ACYCLOVIR [Concomitant]
     Indication: PRODUCT USED FOR UNKNOWN INDICATION
     Dosage: DOSE UNIT:U UNKNOWN
     Route: 065
     Dates: start: 20111112
  7. NAVOBAN [Concomitant]
     Indication: PRODUCT USED FOR UNKNOWN INDICATION
     Dosage: DOSE UNIT:U UNKNOWN
     Route: 065
  8. MEROPENEM [Concomitant]
     Indication: PRODUCT USED FOR UNKNOWN INDICATION
     Dosage: DOSE UNIT:U UNKNOWN
     Route: 065
     Dates: start: 20111030
  9. VFEND [Concomitant]
     Indication: PRODUCT USED FOR UNKNOWN INDICATION
     Dosage: DOSE UNIT:U UNKNOWN
     Route: 065
     Dates: start: 02011104
  10. PASPERTIN /01169401/ [Concomitant]
     Indication: PRODUCT USED FOR UNKNOWN INDICATION
     Dosage: DOSE UNIT:U UNKNOWN
     Route: 065
  11. ACETAMINOPHEN [Concomitant]
     Indication: PRODUCT USED FOR UNKNOWN INDICATION
     Dosage: DOSE UNIT:U UNKNOWN
     Route: 065
  12. VANCOCIN HYDROCHLORIDE [Suspect]
     Indication: NEUTROPENIC COLITIS
     Dosage: DOSE UNIT:U UNKNOWN
     Route: 065
     Dates: start: 20111104

REACTIONS (6)
  - SEPTIC SHOCK [None]
  - HAEMOGLOBIN DECREASED [None]
  - RENAL FAILURE ACUTE [None]
  - ACUTE HEPATIC FAILURE [None]
  - NEUTROPENIA [None]
  - CARDIAC FAILURE ACUTE [None]
